FAERS Safety Report 14827184 (Version 1)
Quarter: 2018Q2

REPORT INFORMATION
  Report Type: Spontaneous
  Country: US (occurrence: US)
  Receive Date: 20180405
  Receipt Date: 20180405
  Transmission Date: 20180711
  Serious: Yes (Other)
  Sender: FDA-Public Use
  Company Number: None

PATIENT

DRUGS (1)
  1. EPHEDRINE SULFATE. [Suspect]
     Active Substance: EPHEDRINE SULFATE
     Route: 040
     Dates: start: 20180405, end: 20180405

REACTIONS (3)
  - Blood pressure increased [None]
  - Heart rate decreased [None]
  - Product label issue [None]

NARRATIVE: CASE EVENT DATE: 20180405
